FAERS Safety Report 23840896 (Version 2)
Quarter: 2024Q2

REPORT INFORMATION
  Report Type: Report from Study
  Country: US (occurrence: US)
  Receive Date: 20240510
  Receipt Date: 20240514
  Transmission Date: 20240716
  Serious: Yes (Other)
  Sender: FDA-Public Use
  Company Number: US-ABBVIE-5751342

PATIENT
  Sex: Male

DRUGS (1)
  1. SKYRIZI [Suspect]
     Active Substance: RISANKIZUMAB-RZAA
     Indication: Product used for unknown indication
     Route: 058
     Dates: start: 20230302

REACTIONS (4)
  - Surgery [Not Recovered/Not Resolved]
  - Drug hypersensitivity [Unknown]
  - Hepatic infection [Not Recovered/Not Resolved]
  - Pneumonia [Not Recovered/Not Resolved]
